FAERS Safety Report 21812916 (Version 1)
Quarter: 2023Q1

REPORT INFORMATION
  Report Type: Spontaneous
  Country: RO (occurrence: RO)
  Receive Date: 20230103
  Receipt Date: 20230103
  Transmission Date: 20230418
  Serious: Yes (Other)
  Sender: FDA-Public Use
  Company Number: RO-ROCHE-3206271

PATIENT
  Age: 65 Year
  Sex: Female
  Weight: 55 kg

DRUGS (7)
  1. TRASTUZUMAB [Suspect]
     Active Substance: TRASTUZUMAB
     Indication: HER2 positive breast cancer
     Dosage: 8 MG/M2, MOST RECENT DOSE PRIOR TO AE 28-AUG-2020
     Route: 042
     Dates: start: 20180306
  2. TRASTUZUMAB [Suspect]
     Active Substance: TRASTUZUMAB
     Dosage: 3.6 MILLIGRAM/SQ. METER
     Route: 042
     Dates: start: 20200921, end: 20220517
  3. CARBOPLATIN [Suspect]
     Active Substance: CARBOPLATIN
     Indication: HER2 positive breast cancer
     Dosage: 280MG, MOST RECENT DOSE PRIOR TO AE 24-APR-2019
     Route: 042
     Dates: start: 20190306
  4. LAPATINIB [Suspect]
     Active Substance: LAPATINIB
     Indication: HER2 positive breast cancer
     Dosage: 1250 MG/KG,MOST RECENT DOSE PRIOR TO AE 04-JUL-22
     Route: 048
     Dates: start: 20220704
  5. CAPECITABINE [Suspect]
     Active Substance: CAPECITABINE
     Indication: HER2 positive breast cancer
     Dosage: 2000 MG/KG,MOST RECENT DOSE PRIOR TO AE 4-JUL-22
     Route: 048
     Dates: start: 20220704
  6. PACLITAXEL [Suspect]
     Active Substance: PACLITAXEL
     Indication: HER2 positive breast cancer
     Dosage: 80 MG/M2,MOST RECENT DOSE PRIOR TO AE 28-AUG-2020
     Route: 042
     Dates: start: 20180306
  7. LETROZOLE [Suspect]
     Active Substance: LETROZOLE
     Indication: HER2 positive breast cancer
     Dosage: 2.5 MILLIGRAM,QD (SINGLE 1 DAYS)
     Route: 048
     Dates: start: 20210712

REACTIONS (1)
  - Hepatic cytolysis [Not Recovered/Not Resolved]

NARRATIVE: CASE EVENT DATE: 20220321
